FAERS Safety Report 6016105-8 (Version None)
Quarter: 2008Q4

REPORT INFORMATION
  Report Type: 
  Country: None (occurrence: None)
  Receive Date: 20081222
  Receipt Date: 20081215
  Transmission Date: 20090506
  Serious: Yes (Hospitalization, Other)
  Sender: FDA-Public Use
  Company Number: US-ELI_LILLY_AND_COMPANY-US200810002980

PATIENT
  Age: 86 Year
  Sex: Female

DRUGS (12)
  1. FORTEO [Suspect]
     Indication: OSTEOPOROSIS
     Dosage: 20 UG, DAILY (1/D)
     Dates: start: 20050501, end: 20061101
  2. AGGRENOX [Concomitant]
     Indication: ANTICOAGULANT THERAPY
     Dosage: UNK, 2/D
  3. SYNTHROID [Concomitant]
     Dosage: 75 UG, DAILY (1/D)
  4. PLENDIL [Concomitant]
     Indication: BLOOD PRESSURE
     Dosage: 2.5 MG, DAILY (1/D)
  5. VASOTEC [Concomitant]
     Indication: BLOOD PRESSURE
     Dosage: 5 MG, UNK
  6. LASIX [Concomitant]
     Indication: DIURETIC THERAPY
     Dosage: 20 MG, 3/W
  7. KLONOPIN [Concomitant]
     Indication: SLEEP DISORDER
     Dosage: 0.5 MG, EACH EVENING
  8. TIMOLOL [Concomitant]
     Indication: INTRAOCULAR PRESSURE INCREASED
  9. RESTASIS [Concomitant]
     Indication: DRY EYE
     Dosage: 1 GTT, 2/D
     Route: 047
  10. MULTIVITAMIN [Concomitant]
     Dosage: UNK, DAILY (1/D)
  11. NEURONTIN [Concomitant]
  12. ACIPHEX [Concomitant]

REACTIONS (11)
  - ANGIOLIPOMA [None]
  - CEREBROVASCULAR ACCIDENT [None]
  - DIVERTICULITIS [None]
  - DIVERTICULUM [None]
  - HOSPITALISATION [None]
  - HYPERTENSION [None]
  - LOSS OF CONSCIOUSNESS [None]
  - MEMORY IMPAIRMENT [None]
  - RENAL CELL CARCINOMA [None]
  - RENAL FAILURE CHRONIC [None]
  - VISUAL ACUITY REDUCED [None]
